FAERS Safety Report 20214694 (Version 3)
Quarter: 2022Q2

REPORT INFORMATION
  Report Type: Spontaneous
  Country: JP (occurrence: JP)
  Receive Date: 20211221
  Receipt Date: 20220606
  Transmission Date: 20220720
  Serious: Yes (Hospitalization, Other)
  Sender: FDA-Public Use
  Company Number: JP-KYOWAKIRIN-2021AKK016104

PATIENT
  Age: 49 Year
  Sex: Female

DRUGS (3)
  1. CINACALCET HYDROCHLORIDE [Suspect]
     Active Substance: CINACALCET HYDROCHLORIDE
     Indication: Hyperparathyroidism primary
     Dosage: UNK
     Route: 048
  2. EVOCALCET [Suspect]
     Active Substance: EVOCALCET
     Indication: Hyperparathyroidism primary
     Dosage: UNK
     Route: 048
     Dates: start: 20201102
  3. EVOCALCET [Suspect]
     Active Substance: EVOCALCET
     Dosage: UNK
     Route: 048
     Dates: start: 20210921

REACTIONS (1)
  - Duodenal perforation [Recovering/Resolving]

NARRATIVE: CASE EVENT DATE: 20210908
